FAERS Safety Report 7877091-9 (Version None)
Quarter: 2011Q4

REPORT INFORMATION
  Report Type: 
  Country: None (occurrence: None)
  Receive Date: 20111031
  Receipt Date: 20110925
  Transmission Date: 20120403
  Serious: No
  Sender: FDA-Public Use
  Company Number: US-ABBOTT-11P-163-0839334-00

PATIENT
  Age: 7 Year
  Sex: Female
  Weight: 21.792 kg

DRUGS (1)
  1. CREON [Suspect]
     Indication: PRODUCT USED FOR UNKNOWN INDICATION
     Dosage: 24, 3 WITH MEALS, 2 WITH SNACKS

REACTIONS (2)
  - DIARRHOEA [None]
  - HAEMORRHAGE [None]
